FAERS Safety Report 23535823 (Version 4)
Quarter: 2024Q1

REPORT INFORMATION
  Report Type: Spontaneous
  Country: FR (occurrence: FR)
  Receive Date: 20240218
  Receipt Date: 20240328
  Transmission Date: 20240410
  Serious: Yes (Death)
  Sender: FDA-Public Use
  Company Number: None

PATIENT
  Age: 55 Year
  Sex: Male
  Weight: 138 kg

DRUGS (9)
  1. METFORMIN [Suspect]
     Active Substance: METFORMIN HYDROCHLORIDE
     Indication: Type 2 diabetes mellitus
     Route: 048
     Dates: end: 20240123
  2. DICLOFENAC [Suspect]
     Active Substance: DICLOFENAC
     Indication: Diabetic foot
     Route: 003
     Dates: start: 20230921, end: 20231230
  3. HYDROCORTISONE [Suspect]
     Active Substance: HYDROCORTISONE
     Indication: Diabetic foot
     Route: 003
     Dates: start: 20230921
  4. CANDESARTAN CILEXETIL\HYDROCHLOROTHIAZIDE [Suspect]
     Active Substance: CANDESARTAN CILEXETIL\HYDROCHLOROTHIAZIDE
     Indication: Hypertension
     Dosage: 8 MG/12.5 MG IN THE MORNING
     Route: 048
     Dates: end: 20240122
  5. NAPROXEN [Suspect]
     Active Substance: NAPROXEN
     Indication: Diabetic foot
     Dosage: 550 MG 2/DAY
     Route: 048
     Dates: start: 20231130, end: 20231230
  6. NAPROXEN [Suspect]
     Active Substance: NAPROXEN
     Route: 048
     Dates: start: 20240122
  7. KARDEGIC [Suspect]
     Active Substance: ASPIRIN DL-LYSINE
     Indication: Cardiovascular event prophylaxis
     Dosage: MIDDAY
     Route: 048
     Dates: end: 20240122
  8. IBUPROFEN [Suspect]
     Active Substance: IBUPROFEN
     Indication: Pain
     Route: 048
     Dates: start: 20240115, end: 20240122
  9. PRAVASTATIN SODIUM [Suspect]
     Active Substance: PRAVASTATIN SODIUM
     Indication: Dyslipidaemia
     Dosage: IN THE EVENING
     Route: 048
     Dates: end: 20240122

REACTIONS (3)
  - Infection [Fatal]
  - Acute kidney injury [Fatal]
  - Lactic acidosis [Fatal]

NARRATIVE: CASE EVENT DATE: 20240123
